FAERS Safety Report 9830046 (Version 1)
Quarter: 2014Q1

REPORT INFORMATION
  Report Type: Spontaneous
  Country: US (occurrence: US)
  Receive Date: 20140120
  Receipt Date: 20140120
  Transmission Date: 20141002
  Serious: No
  Sender: FDA-Public Use
  Company Number: US-VERTEX PHARMACEUTICALS INC-2014-000232

PATIENT
  Sex: Female

DRUGS (3)
  1. INCIVEK [Suspect]
     Indication: HEPATITIS C
     Dosage: UNK, TID
     Dates: start: 20140108
  2. RIBAVIRIN [Suspect]
     Indication: HEPATITIS C
     Dosage: 5 DF, QD
     Dates: start: 20140108
  3. PEGASYS [Suspect]
     Indication: HEPATITIS C
     Dosage: INJECTION QW
     Dates: start: 20140110

REACTIONS (2)
  - Chest discomfort [Not Recovered/Not Resolved]
  - Nausea [Unknown]
